FAERS Safety Report 12654265 (Version 3)
Quarter: 2017Q3

REPORT INFORMATION
  Report Type: Spontaneous
  Country: US (occurrence: US)
  Receive Date: 20160816
  Receipt Date: 20170927
  Transmission Date: 20171127
  Serious: No
  Sender: FDA-Public Use
  Company Number: US-ASTRAZENECA-2012SE03300

PATIENT
  Age: 957 Month
  Sex: Male
  Weight: 56.7 kg

DRUGS (8)
  1. SYMBICORT [Suspect]
     Active Substance: BUDESONIDE\FORMOTEROL FUMARATE DIHYDRATE
     Indication: EMPHYSEMA
     Dosage: 2 SPRAYS IN THE MORNING AND 2 SPRAYS AT NIGHT,STARTED ABOUT TWO WEEKS AFTER IT WAS RECEIVED
     Route: 055
     Dates: start: 2016
  2. ALBUTEROL. [Concomitant]
     Active Substance: ALBUTEROL
     Indication: CHRONIC OBSTRUCTIVE PULMONARY DISEASE
     Dosage: 2.5MG EVERY 4 - 6 HOURS
     Route: 055
     Dates: start: 2013
  3. SYMBICORT [Suspect]
     Active Substance: BUDESONIDE\FORMOTEROL FUMARATE DIHYDRATE
     Indication: CHRONIC OBSTRUCTIVE PULMONARY DISEASE
     Dosage: 160/4.5 UG, 2 PUFFS TWO TIMES A DAY
     Route: 055
     Dates: start: 20111226
  4. SYMBICORT [Suspect]
     Active Substance: BUDESONIDE\FORMOTEROL FUMARATE DIHYDRATE
     Indication: CHRONIC OBSTRUCTIVE PULMONARY DISEASE
     Dosage: 160/4.5 UG, 2 PUFFS TWO TIMES A DAY,TWO SPRAYS IN THE MORNING AND TWO SPRAYS AT NIGHT
     Route: 055
     Dates: start: 2013
  5. SYMBICORT [Suspect]
     Active Substance: BUDESONIDE\FORMOTEROL FUMARATE DIHYDRATE
     Indication: EMPHYSEMA
     Dosage: 160/4.5 UG, 2 PUFFS TWO TIMES A DAY,TWO SPRAYS IN THE MORNING AND TWO SPRAYS AT NIGHT
     Route: 055
     Dates: start: 2013
  6. SYMBICORT [Suspect]
     Active Substance: BUDESONIDE\FORMOTEROL FUMARATE DIHYDRATE
     Indication: EMPHYSEMA
     Dosage: 160/4.5 UG, 2 PUFFS TWO TIMES A DAY
     Route: 055
     Dates: start: 20111226
  7. SYMBICORT [Suspect]
     Active Substance: BUDESONIDE\FORMOTEROL FUMARATE DIHYDRATE
     Indication: CHRONIC OBSTRUCTIVE PULMONARY DISEASE
     Dosage: 2 SPRAYS IN THE MORNING AND 2 SPRAYS AT NIGHT,STARTED ABOUT TWO WEEKS AFTER IT WAS RECEIVED
     Route: 055
     Dates: start: 2016
  8. IPRATROPIUM [Concomitant]
     Active Substance: IPRATROPIUM
     Indication: CHRONIC OBSTRUCTIVE PULMONARY DISEASE
     Dosage: 0.5MG EVERY 4 - 6 HOURS
     Route: 055
     Dates: start: 2013

REACTIONS (6)
  - Drug ineffective [Unknown]
  - Dyspnoea [Recovered/Resolved]
  - Chest discomfort [Unknown]
  - Intentional product use issue [Unknown]
  - Circumstance or information capable of leading to medication error [Unknown]
  - Product quality issue [Unknown]

NARRATIVE: CASE EVENT DATE: 201603
